FAERS Safety Report 6974849-5 (Version None)
Quarter: 2010Q3

REPORT INFORMATION
  Report Type: 
  Country: None (occurrence: None)
  Receive Date: 20100824
  Receipt Date: 20100505
  Transmission Date: 20110219
  Serious: No
  Sender: FDA-Public Use
  Company Number: 308633

PATIENT
  Sex: Female

DRUGS (2)
  1. NOVOLOG MIX 70/30 [Suspect]
     Indication: TYPE 2 DIABETES MELLITUS
     Dosage: UNK SUBCUTANEOUS
     Route: 058
     Dates: start: 20100110
  2. VICTOZA [Suspect]
     Indication: TYPE 2 DIABETES MELLITUS
     Dosage: 0.6 MG QD SUBCUTANEOUS
     Route: 058
     Dates: start: 20100503

REACTIONS (1)
  - BLOOD GLUCOSE FLUCTUATION [None]
